FAERS Safety Report 8304166-2 (Version None)
Quarter: 2012Q2

REPORT INFORMATION
  Report Type: 
  Country: None (occurrence: None)
  Receive Date: 20120423
  Receipt Date: 20120328
  Transmission Date: 20120825
  Serious: Yes (Other)
  Sender: FDA-Public Use
  Company Number: US-BAYER-2012-022191

PATIENT
  Age: 23 Year
  Sex: Female
  Weight: 63.039 kg

DRUGS (2)
  1. MIRENA [Suspect]
     Indication: ENDOMETRIOSIS
  2. MIRENA [Suspect]
     Indication: CONTRACEPTION
     Dosage: 20 MCG/24HR, CONT
     Route: 015
     Dates: start: 20120101, end: 20120201

REACTIONS (6)
  - PAROSMIA [None]
  - SINUSITIS [None]
  - KLEBSIELLA INFECTION [None]
  - ABDOMINAL PAIN LOWER [None]
  - PELVIC PAIN [None]
  - VAGINAL DISCHARGE [None]
